FAERS Safety Report 5042892-1 (Version None)
Quarter: 2006Q3

REPORT INFORMATION
  Report Type: 
  Country: None (occurrence: None)
  Receive Date: 20060705
  Receipt Date: 20060629
  Transmission Date: 20061208
  Serious: Yes (Other)
  Sender: FDA-Public Use
  Company Number: DE-GLAXOSMITHKLINE-D0050171A

PATIENT
  Age: 55 Year
  Sex: Female

DRUGS (1)
  1. AUGMENTIN '125' [Suspect]
     Route: 048
     Dates: start: 20060511, end: 20060515

REACTIONS (3)
  - BURNING SENSATION MUCOSAL [None]
  - HEPATIC ENZYME INCREASED [None]
  - MALAISE [None]
